FAERS Safety Report 7888158 (Version 28)
Quarter: 2014Q1

REPORT INFORMATION
  Report Type: Spontaneous
  Country: US (occurrence: US)
  Receive Date: 20110406
  Receipt Date: 20140127
  Transmission Date: 20141002
  Serious: Yes (Death, Hospitalization, Other)
  Sender: FDA-Public Use
  Company Number: PHEH2011US00461

PATIENT
  Age: 68 Year
  Sex: Female

DRUGS (11)
  1. AREDIA [Suspect]
     Indication: METASTASES TO BONE
     Dosage: 90 MG, QMO
     Route: 042
     Dates: start: 20030513, end: 20051103
  2. ZOMETA [Suspect]
     Indication: METASTASES TO BONE
     Route: 042
  3. CELEBREX [Concomitant]
     Dosage: 100 MG,
     Route: 048
     Dates: start: 20101229
  4. CYCLOBENZAPRINE [Concomitant]
     Dosage: 10 MG, PRN
     Route: 048
  5. DARVOCET-N [Concomitant]
     Dosage: 1 DF, PRN
  6. HYDROXYZINE [Concomitant]
     Dosage: 10 MG, TID
     Dates: start: 20101214
  7. METOPROLOL SUCCINATE [Concomitant]
     Dosage: 25 MG, QD
  8. XELODA [Concomitant]
  9. PERIDEX [Concomitant]
  10. COMPAZINE [Concomitant]
  11. FENTANYL [Concomitant]

REACTIONS (117)
  - Death [Fatal]
  - Abdominal pain [Unknown]
  - Vomiting [Recovered/Resolved]
  - Nausea [Recovered/Resolved]
  - Osteonecrosis of jaw [Unknown]
  - Injury [Unknown]
  - Pain [Unknown]
  - Anxiety [Unknown]
  - Anhedonia [Unknown]
  - Exposed bone in jaw [Unknown]
  - Facial pain [Unknown]
  - Pain in jaw [Unknown]
  - Gingival pain [Unknown]
  - Oral candidiasis [Unknown]
  - Odynophagia [Unknown]
  - Haemorrhage [Unknown]
  - Haemangioma of liver [Unknown]
  - Hepatic lesion [Unknown]
  - Hepatic cyst [Unknown]
  - Actinic keratosis [Unknown]
  - Arthritis [Unknown]
  - Depression [Unknown]
  - Seborrhoeic keratosis [Unknown]
  - Scoliosis [Unknown]
  - Intervertebral disc degeneration [Unknown]
  - Cystitis noninfective [Unknown]
  - Haematuria [Unknown]
  - Pyelonephritis [Unknown]
  - Dysuria [Unknown]
  - Hepatic neoplasm [Unknown]
  - Osteoporosis [Unknown]
  - Small intestinal obstruction [Unknown]
  - Hypovolaemia [Unknown]
  - Gastroenteritis [Unknown]
  - Urinary tract infection [Unknown]
  - Pathological fracture [Unknown]
  - Bronchospasm [Unknown]
  - Essential hypertension [Unknown]
  - Cataract [Unknown]
  - Pelvic fracture [Unknown]
  - Polyp [Unknown]
  - Painful respiration [Unknown]
  - Neck pain [Unknown]
  - Rib fracture [Unknown]
  - Intervertebral disc protrusion [Unknown]
  - Vertebral foraminal stenosis [Unknown]
  - Joint effusion [Unknown]
  - Sciatica [Unknown]
  - Menometrorrhagia [Unknown]
  - Folliculitis [Unknown]
  - Sinusitis [Unknown]
  - Asthenia [Unknown]
  - Myalgia [Unknown]
  - Musculoskeletal chest pain [Unknown]
  - Constipation [Unknown]
  - Fall [Unknown]
  - Hypercalcaemia [Unknown]
  - Bone pain [Unknown]
  - Oedema [Unknown]
  - Rash [Unknown]
  - Chest discomfort [Unknown]
  - Local swelling [Unknown]
  - Cerumen impaction [Unknown]
  - Metabolic acidosis [Unknown]
  - Dizziness [Unknown]
  - Breast cancer [Unknown]
  - Autoimmune disorder [Unknown]
  - Gait disturbance [Unknown]
  - Coordination abnormal [Unknown]
  - Hypokalaemia [Unknown]
  - Insomnia [Unknown]
  - Neoplasm progression [Unknown]
  - Malignant neoplasm progression [Unknown]
  - Bone cancer [Unknown]
  - Metastases to spine [Unknown]
  - Osteopenia [Unknown]
  - Nasal septum deviation [Unknown]
  - Nasal turbinate hypertrophy [Unknown]
  - Joint injury [Unknown]
  - Fracture [Unknown]
  - Lung neoplasm malignant [Unknown]
  - Sinus tachycardia [Unknown]
  - Metastases to pelvis [Unknown]
  - Stomatitis [Unknown]
  - Thrombosis [Unknown]
  - Atrial fibrillation [Unknown]
  - Metastases to liver [Unknown]
  - Spinal pain [Unknown]
  - Cardiomegaly [Unknown]
  - Pleural effusion [Unknown]
  - Spinal deformity [Unknown]
  - Spinal column stenosis [Unknown]
  - Groin pain [Unknown]
  - Pelvic pain [Unknown]
  - Atelectasis [Unknown]
  - Rib deformity [Unknown]
  - Alopecia [Unknown]
  - Hypertension [Unknown]
  - Embolism venous [Unknown]
  - Hip fracture [Unknown]
  - Traumatic fracture [Unknown]
  - Flank pain [Unknown]
  - Vaginal flatulence [Unknown]
  - Stress urinary incontinence [Unknown]
  - Neoplasm [Unknown]
  - Deep vein thrombosis [Unknown]
  - Lymphadenopathy [Unknown]
  - Oropharyngeal pain [Unknown]
  - Hypotension [Unknown]
  - Osteoarthritis [Unknown]
  - Arthralgia [Unknown]
  - Dermatitis [Unknown]
  - Intestinal dilatation [Unknown]
  - Osteolysis [Unknown]
  - Kyphoscoliosis [Unknown]
  - Dehydration [Unknown]
  - Dry mouth [Unknown]
